FAERS Safety Report 14543757 (Version 12)
Quarter: 2019Q3

REPORT INFORMATION
  Report Type: Spontaneous
  Country: US (occurrence: US)
  Receive Date: 20180216
  Receipt Date: 20190919
  Transmission Date: 20191004
  Serious: Yes (Hospitalization)
  Sender: FDA-Public Use
  Company Number: US-ACTELION-A-US2018-167813

PATIENT
  Age: 38 Year
  Sex: Female
  Weight: 165.53 kg

DRUGS (4)
  1. REMODULIN [Concomitant]
     Active Substance: TREPROSTINIL
     Dosage: UNK
  2. SILDENAFIL CITRATE. [Concomitant]
     Active Substance: SILDENAFIL CITRATE
  3. WARFARIN [Concomitant]
     Active Substance: WARFARIN
  4. OPSUMIT [Suspect]
     Active Substance: MACITENTAN
     Indication: PULMONARY ARTERIAL HYPERTENSION
     Dosage: 10 MG, QD
     Route: 048

REACTIONS (15)
  - Pyrexia [Unknown]
  - Respiratory disorder [Unknown]
  - Erythema [Unknown]
  - Flushing [Unknown]
  - Fluid overload [Unknown]
  - Oedema [Unknown]
  - Abdominal pain [Unknown]
  - Dyspnoea [Unknown]
  - Device issue [Unknown]
  - Nausea [Unknown]
  - Fluid retention [Unknown]
  - Fatigue [Unknown]
  - Nasopharyngitis [Unknown]
  - Syncope [Unknown]
  - Weight increased [Unknown]

NARRATIVE: CASE EVENT DATE: 201803
